FAERS Safety Report 18532929 (Version 2)
Quarter: 2020Q4

REPORT INFORMATION
  Report Type: Spontaneous
  Country: IN (occurrence: IN)
  Receive Date: 20201123
  Receipt Date: 20201203
  Transmission Date: 20210114
  Serious: Yes (Hospitalization, Other)
  Sender: FDA-Public Use
  Company Number: IN-SA-2020SA327130

PATIENT

DRUGS (6)
  1. PYRAZINAMIDE. [Suspect]
     Active Substance: PYRAZINAMIDE
     Indication: PULMONARY TUBERCULOSIS
  2. ETHAMBUTOL [Concomitant]
     Active Substance: ETHAMBUTOL HYDROCHLORIDE
     Indication: PULMONARY TUBERCULOSIS
  3. RIFAMPICIN [Suspect]
     Active Substance: RIFAMPIN
     Indication: TUBERCULOSIS
     Dosage: UNK
  4. ISONIAZID. [Suspect]
     Active Substance: ISONIAZID
     Indication: PULMONARY TUBERCULOSIS
  5. STREPTOMYCIN [Concomitant]
     Active Substance: STREPTOMYCIN SULFATE
     Indication: PULMONARY TUBERCULOSIS
  6. OFLOXACIN. [Concomitant]
     Active Substance: OFLOXACIN
     Indication: PULMONARY TUBERCULOSIS

REACTIONS (14)
  - Pulmonary oedema [Recovering/Resolving]
  - Cardiac failure [Recovering/Resolving]
  - Shock [Recovering/Resolving]
  - Sinus tachycardia [Recovering/Resolving]
  - Hypersensitivity myocarditis [Recovering/Resolving]
  - Abdominal pain [Recovering/Resolving]
  - Heart sounds abnormal [Recovering/Resolving]
  - Transaminases increased [Recovered/Resolved]
  - Respiratory distress [Recovering/Resolving]
  - Cardiac dysfunction [Recovering/Resolving]
  - Crepitations [Recovering/Resolving]
  - Pyrexia [Unknown]
  - Erythema [Recovering/Resolving]
  - Headache [Recovering/Resolving]
